FAERS Safety Report 17065067 (Version 1)
Quarter: 2019Q4

REPORT INFORMATION
  Report Type: Spontaneous
  Country: US (occurrence: US)
  Receive Date: 20191122
  Receipt Date: 20191122
  Transmission Date: 20200122
  Serious: No
  Sender: FDA-Public Use
  Company Number: US-SA-2019SA314648

PATIENT
  Age: 81 Year
  Sex: Female

DRUGS (1)
  1. PRALUENT [Suspect]
     Active Substance: ALIROCUMAB
     Indication: BLOOD CHOLESTEROL INCREASED
     Dosage: 75 MG, QOW
     Route: 058
     Dates: start: 20191027, end: 20191109

REACTIONS (11)
  - Musculoskeletal pain [Unknown]
  - Cough [Unknown]
  - Injection site mass [Unknown]
  - Diarrhoea [Unknown]
  - Device use issue [Unknown]
  - Injection site bruising [Unknown]
  - Urinary incontinence [Unknown]
  - Diarrhoea [Unknown]
  - Dysuria [Unknown]
  - Back pain [Unknown]
  - Injection site pain [Unknown]

NARRATIVE: CASE EVENT DATE: 2019
